FAERS Safety Report 13986859 (Version 1)
Quarter: 2017Q3

REPORT INFORMATION
  Report Type: Spontaneous
  Country: HR (occurrence: HR)
  Receive Date: 20170919
  Receipt Date: 20170919
  Transmission Date: 20171128
  Serious: Yes (Hospitalization)
  Sender: FDA-Public Use
  Company Number: HR-GEHC-2017CSU002814

PATIENT

DRUGS (6)
  1. OMNIPAQUE [Suspect]
     Active Substance: IOHEXOL
     Dosage: 350 ML, SINGLE
     Route: 013
  2. HEPARIN [Concomitant]
     Active Substance: HEPARIN SODIUM
     Dosage: 10000 IU, UNK
  3. EPTIFIBATIDA [Concomitant]
     Route: 040
  4. OMNIPAQUE [Suspect]
     Active Substance: IOHEXOL
     Indication: VASCULAR STENT RESTENOSIS
     Dosage: 350 ML, SINGLE
     Route: 013
  5. CLOPIDOGREL [Concomitant]
     Active Substance: CLOPIDOGREL BISULFATE
     Dosage: 600 MG, UNK
  6. ASPIRIN                            /00002701/ [Concomitant]
     Active Substance: ASPIRIN
     Dosage: 100 MG, UNK

REACTIONS (2)
  - Overdose [Unknown]
  - Ischaemic stroke [Recovered/Resolved]
